FAERS Safety Report 6689341-5 (Version None)
Quarter: 2010Q2

REPORT INFORMATION
  Report Type: 
  Country: None (occurrence: None)
  Receive Date: 20100419
  Receipt Date: 20100419
  Transmission Date: 20101027
  Serious: Yes (Other)
  Sender: FDA-Public Use
  Company Number: None

PATIENT
  Age: 62 Year
  Sex: Male
  Weight: 99.3377 kg

DRUGS (1)
  1. PSYLLIUM WHOLE HUSKS GROUND PHYLLIUM YERBA PRIMA, INC [Suspect]

REACTIONS (4)
  - ABDOMINAL PAIN UPPER [None]
  - FLUSHING [None]
  - HEART RATE INCREASED [None]
  - PRESYNCOPE [None]
